FAERS Safety Report 16525949 (Version 5)
Quarter: 2019Q3

REPORT INFORMATION
  Report Type: Spontaneous
  Country: US (occurrence: US)
  Receive Date: 20190703
  Receipt Date: 20190911
  Transmission Date: 20191004
  Serious: No
  Sender: FDA-Public Use
  Company Number: US-BIOGEN-2019BI00756257

PATIENT
  Age: 58 Year
  Sex: Male

DRUGS (1)
  1. TYSABRI [Suspect]
     Active Substance: NATALIZUMAB
     Indication: MULTIPLE SCLEROSIS
     Route: 042
     Dates: start: 20110919

REACTIONS (8)
  - Multiple allergies [Unknown]
  - Memory impairment [Unknown]
  - Poor venous access [Unknown]
  - Blood cholesterol increased [Unknown]
  - Product dose omission [Not Recovered/Not Resolved]
  - Multiple sclerosis [Not Recovered/Not Resolved]
  - Anxiety [Unknown]
  - Alcoholism [Unknown]

NARRATIVE: CASE EVENT DATE: 20190606
